FAERS Safety Report 10042864 (Version 2)
Quarter: 2014Q1

REPORT INFORMATION
  Report Type: Spontaneous
  Country: US (occurrence: US)
  Receive Date: 20140327
  Receipt Date: 20140327
  Transmission Date: 20141002
  Serious: Yes (Disabling)
  Sender: FDA-Public Use
  Company Number: US-GE HEALTHCARE MEDICAL DIAGNOSTICS-OSCN-PR-0801S-0011

PATIENT
  Age: 51 Year
  Sex: Male

DRUGS (10)
  1. GADOLINIUM (UNSPECIFIED) [Suspect]
     Indication: PRODUCT USED FOR UNKNOWN INDICATION
     Route: 042
     Dates: start: 20011102, end: 20011102
  2. GADOLINIUM (UNSPECIFIED) [Suspect]
     Route: 042
     Dates: start: 20020121, end: 20020121
  3. GADOLINIUM (UNSPECIFIED) [Suspect]
     Route: 042
     Dates: start: 20030728, end: 20030728
  4. GADOLINIUM (UNSPECIFIED) [Suspect]
     Route: 042
     Dates: start: 20040922, end: 20040922
  5. GADOLINIUM (UNSPECIFIED) [Suspect]
     Route: 042
     Dates: start: 20050309, end: 20050309
  6. GADOLINIUM (UNSPECIFIED) [Suspect]
     Route: 042
     Dates: start: 20051202, end: 20051202
  7. GADOLINIUM (UNSPECIFIED) [Suspect]
     Route: 042
     Dates: start: 20051227, end: 20051227
  8. MAGNEVIST [Suspect]
     Indication: PRODUCT USED FOR UNKNOWN INDICATION
     Route: 042
     Dates: start: 20051104, end: 20051104
  9. OPTIMARK [Suspect]
     Indication: PRODUCT USED FOR UNKNOWN INDICATION
     Route: 042
     Dates: start: 20060126, end: 20060126
  10. OPTIMARK [Suspect]
     Route: 042
     Dates: start: 20060918, end: 20060918

REACTIONS (1)
  - Nephrogenic systemic fibrosis [Not Recovered/Not Resolved]
